FAERS Safety Report 9451662 (Version 1)
Quarter: 2013Q3

REPORT INFORMATION
  Report Type: Spontaneous
  Country: US (occurrence: US)
  Receive Date: 20130812
  Receipt Date: 20130812
  Transmission Date: 20140515
  Serious: No
  Sender: FDA-Public Use
  Company Number: US-009507513-1308USA002144

PATIENT
  Age: 40 Year
  Sex: Male

DRUGS (2)
  1. MAXALT MLT [Suspect]
     Indication: MIGRAINE
     Dosage: 10 MG, PRN
     Route: 048
     Dates: start: 20130729
  2. CRESTOR [Concomitant]

REACTIONS (4)
  - Depressed level of consciousness [Recovered/Resolved]
  - Sedation [Recovered/Resolved]
  - Vision blurred [Recovered/Resolved]
  - Dysphagia [Recovered/Resolved]
